FAERS Safety Report 11599060 (Version 1)
Quarter: 2015Q4

REPORT INFORMATION
  Report Type: Spontaneous
  Country: US (occurrence: US)
  Receive Date: 20151006
  Receipt Date: 20151006
  Transmission Date: 20160304
  Serious: Yes (Hospitalization, Other)
  Sender: FDA-Public Use
  Company Number: US-BAUSCH-BL-2015-020141

PATIENT
  Age: 73 Year
  Sex: Male

DRUGS (2)
  1. PROVENGE [Suspect]
     Active Substance: SIPULEUCEL-T
     Dosage: 250ML, SINGLE DOSE
     Route: 042
     Dates: start: 20150904, end: 20150904
  2. PROVENGE [Suspect]
     Active Substance: SIPULEUCEL-T
     Indication: PRODUCT USED FOR UNKNOWN INDICATION
     Dosage: 250ML, SINGLE DOSE
     Route: 042
     Dates: start: 20150807, end: 20150807

REACTIONS (3)
  - Device related infection [Unknown]
  - Culture positive [Unknown]
  - Hip fracture [Unknown]

NARRATIVE: CASE EVENT DATE: 201508
